FAERS Safety Report 12336506 (Version 3)
Quarter: 2016Q3

REPORT INFORMATION
  Report Type: Report from Study
  Country: US (occurrence: US)
  Receive Date: 20160505
  Receipt Date: 20160713
  Transmission Date: 20161109
  Serious: Yes (Hospitalization)
  Sender: FDA-Public Use
  Company Number: US-JNJFOC-20160502733

PATIENT
  Age: 90 Year
  Sex: Female

DRUGS (12)
  1. IMBRUVICA [Suspect]
     Active Substance: IBRUTINIB
     Indication: CHRONIC LYMPHOCYTIC LEUKAEMIA
     Route: 048
     Dates: start: 20160402
  2. ALLOPURINOL. [Concomitant]
     Active Substance: ALLOPURINOL
  3. SYNTHROID [Concomitant]
     Active Substance: LEVOTHYROXINE SODIUM
  4. TEMAZEPAM. [Concomitant]
     Active Substance: TEMAZEPAM
  5. EZETIMIBE W/SIMVASTATIN [Concomitant]
     Active Substance: EZETIMIBE
  6. ASPIRIN. [Concomitant]
     Active Substance: ASPIRIN
  7. CALCIUM [Concomitant]
     Active Substance: CALCIUM
  8. LANTUS [Concomitant]
     Active Substance: INSULIN GLARGINE
  9. MACROGOL [Concomitant]
     Active Substance: POLYETHYLENE GLYCOLS
  10. OXYBUTYNIN [Concomitant]
     Active Substance: OXYBUTYNIN
  11. GLIPIZIDE. [Concomitant]
     Active Substance: GLIPIZIDE
  12. TOPROL XL [Concomitant]
     Active Substance: METOPROLOL SUCCINATE

REACTIONS (3)
  - Nausea [Unknown]
  - Blood glucose increased [Unknown]
  - Vomiting [Unknown]

NARRATIVE: CASE EVENT DATE: 2016
